FAERS Safety Report 24859918 (Version 2)
Quarter: 2025Q2

REPORT INFORMATION
  Report Type: Spontaneous
  Country: JP (occurrence: JP)
  Receive Date: 20250119
  Receipt Date: 20250425
  Transmission Date: 20250716
  Serious: Yes (Death)
  Sender: AMGEN
  Company Number: JP-KISSEI-TV20250044_P_1

PATIENT
  Age: 75 Year
  Sex: Male

DRUGS (2)
  1. TAVNEOS [Suspect]
     Active Substance: AVACOPAN
     Indication: Granulomatosis with polyangiitis
     Dosage: 60 MG, QD
     Route: 048
     Dates: start: 202405, end: 20241229
  2. RITUXIMAB [Concomitant]
     Active Substance: RITUXIMAB
     Indication: Granulomatosis with polyangiitis
     Route: 041

REACTIONS (1)
  - Cardiac failure [Fatal]

NARRATIVE: CASE EVENT DATE: 20241229
